FAERS Safety Report 4963333-6 (Version None)
Quarter: 2006Q2

REPORT INFORMATION
  Report Type: 
  Country: None (occurrence: None)
  Receive Date: 20060405
  Receipt Date: 20060324
  Transmission Date: 20061013
  Serious: Yes (Hospitalization)
  Sender: FDA-Public Use
  Company Number: PHNU2006DE01452

PATIENT
  Sex: Male

DRUGS (1)
  1. SANDIMMUNE [Suspect]

REACTIONS (2)
  - DELUSION [None]
  - PARANOIA [None]
